FAERS Safety Report 8302229-9 (Version None)
Quarter: 2012Q2

REPORT INFORMATION
  Report Type: 
  Country: None (occurrence: None)
  Receive Date: 20120420
  Receipt Date: 20120414
  Transmission Date: 20120825
  Serious: No
  Sender: FDA-Public Use
  Company Number: DE-UCBSA-054560

PATIENT
  Age: 72 Year
  Sex: Female
  Weight: 95 kg

DRUGS (7)
  1. CIMZIA [Suspect]
     Indication: RHEUMATOID ARTHRITIS
     Route: 058
     Dates: start: 20110401, end: 20120101
  2. PREDNISONE TAB [Suspect]
     Indication: RHEUMATOID ARTHRITIS
     Route: 048
  3. RAMICOMP [Concomitant]
     Indication: HYPERTENSION
     Dosage: SINGLE DOSE:2.5/12.5 ,NUMBER OF SINGLE DOSE:1X?6 MG
     Route: 048
  4. ALLOPURINOL [Concomitant]
     Indication: HYPERURICAEMIA
     Route: 048
  5. IBUPROFEN [Suspect]
     Indication: RHEUMATOID ARTHRITIS
     Dosage: SINGLE DOSE: 400
     Route: 048
  6. BISOPROLOL FUMARATE [Concomitant]
     Indication: HYPERTENSION
     Route: 048
  7. IBUPROFEN [Suspect]
     Indication: PAIN
     Dosage: SINGLE DOSE: 400
     Route: 048

REACTIONS (5)
  - BLOOD PRESSURE INCREASED [None]
  - TRANSAMINASES INCREASED [None]
  - OEDEMA PERIPHERAL [None]
  - EXTRASYSTOLES [None]
  - HEPATIC STEATOSIS [None]
